FAERS Safety Report 23267981 (Version 1)
Quarter: 2023Q4

REPORT INFORMATION
  Report Type: Spontaneous
  Country: FR (occurrence: None)
  Receive Date: 20231206
  Receipt Date: 20231206
  Transmission Date: 20240109
  Serious: Yes (Hospitalization, Other)
  Sender: FDA-Public Use
  Company Number: 2023A268424

PATIENT
  Age: 72 Year
  Sex: Male

DRUGS (8)
  1. OMEPRAZOLE [Suspect]
     Active Substance: OMEPRAZOLE
     Indication: Product used for unknown indication
     Route: 048
     Dates: start: 20231030, end: 202311
  2. NOVORAPID [Concomitant]
     Active Substance: INSULIN ASPART
  3. ALFUZOSIN [Concomitant]
     Active Substance: ALFUZOSIN
  4. EZETIMIBE [Concomitant]
     Active Substance: EZETIMIBE
  5. RAMIPRIL [Concomitant]
     Active Substance: RAMIPRIL
  6. LERCANDIPINE [Concomitant]
  7. CHOLECALCIFEROL [Concomitant]
     Active Substance: CHOLECALCIFEROL
  8. OXYBUTYNIN [Concomitant]
     Active Substance: OXYBUTYNIN

REACTIONS (3)
  - Altered state of consciousness [Recovered/Resolved]
  - Confusional state [Recovering/Resolving]
  - Hyperbilirubinaemia [Unknown]

NARRATIVE: CASE EVENT DATE: 20231102
